FAERS Safety Report 7274816-0 (Version None)
Quarter: 2011Q1

REPORT INFORMATION
  Report Type: 
  Country: None (occurrence: None)
  Receive Date: 20110202
  Receipt Date: 20110202
  Transmission Date: 20110831
  Serious: Yes (Other)
  Sender: FDA-Public Use
  Company Number: None

PATIENT
  Sex: Female
  Weight: 58.514 kg

DRUGS (2)
  1. LEVAQUIN [Suspect]
     Indication: BRONCHITIS
     Dosage: 750MG. 1 A DAY TABLET
     Dates: start: 20101221, end: 20101226
  2. LEVAQUIN [Suspect]
     Indication: SINUSITIS
     Dosage: 750MG. 1 A DAY TABLET
     Dates: start: 20101221, end: 20101226

REACTIONS (5)
  - PAIN [None]
  - MYALGIA [None]
  - ARTHRALGIA [None]
  - FATIGUE [None]
  - ASTHENIA [None]
